FAERS Safety Report 6306040-X (Version None)
Quarter: 2009Q3

REPORT INFORMATION
  Report Type: 
  Country: None (occurrence: None)
  Receive Date: 20090812
  Receipt Date: 20090804
  Transmission Date: 20100115
  Serious: Yes (Other)
  Sender: FDA-Public Use
  Company Number: TW-JNJFOC-20090801954

PATIENT
  Age: 44 Year
  Sex: Male

DRUGS (1)
  1. HALDOL [Suspect]
     Indication: INSOMNIA
     Dosage: AT HOUR OF SLEEP AS NECESSARY
     Route: 042

REACTIONS (2)
  - INTESTINAL OPERATION [None]
  - PARKINSONISM [None]
